FAERS Safety Report 7330148-3 (Version None)
Quarter: 2011Q1

REPORT INFORMATION
  Report Type: 
  Country: None (occurrence: None)
  Receive Date: 20110303
  Receipt Date: 20110223
  Transmission Date: 20110831
  Serious: Yes (Other)
  Sender: FDA-Public Use
  Company Number: US-MILLENNIUM PHARMACEUTICALS, INC.-2011-00726

PATIENT
  Sex: Male

DRUGS (2)
  1. REVLIMID [Suspect]
     Indication: MULTIPLE MYELOMA
     Dosage: 10 MG, CYCLIC
     Route: 048
     Dates: start: 20101101
  2. VELCADE [Suspect]
     Indication: MULTIPLE MYELOMA

REACTIONS (3)
  - THROMBOCYTOPENIA [None]
  - HAEMORRHAGE [None]
  - CONSTIPATION [None]
